FAERS Safety Report 7081154 (Version 18)
Quarter: 2014Q2

REPORT INFORMATION
  Report Type: Spontaneous
  Country: GB (occurrence: GB)
  Receive Date: 20090813
  Receipt Date: 20140429
  Transmission Date: 20141212
  Serious: Yes (Life-Threatening, Hospitalization, Disabling, Congenital Anomaly, Other)
  Sender: FDA-Public Use
  Company Number: GB-GILEAD-2009-0023512

PATIENT
  Age: 0 Day
  Sex: Female
  Weight: 2.2 kg

DRUGS (16)
  1. TRUVADA [Suspect]
     Indication: HIV INFECTION
     Dosage: 1 DF, QD
     Route: 064
     Dates: end: 20081023
  2. APTIVUS [Suspect]
     Indication: HIV INFECTION
     Dosage: 500 MG, BID
     Route: 064
     Dates: end: 20081023
  3. NORVIR [Suspect]
     Indication: HIV INFECTION
     Dosage: 100 MG, BID
     Route: 064
     Dates: start: 20081023
  4. NORVIR [Suspect]
     Dosage: 200 MG, BID
     Route: 064
     Dates: end: 20081022
  5. INTELENCE [Suspect]
     Indication: HIV INFECTION
     Dosage: 200 MG, BID
     Route: 064
     Dates: start: 20081023
  6. INTELENCE [Suspect]
     Dosage: 200 MG, BID
     Route: 064
  7. ISENTRESS [Suspect]
     Indication: HIV INFECTION
     Dosage: 400 MG, BID
     Route: 064
     Dates: start: 20081023, end: 20090221
  8. PREZISTA [Suspect]
     Indication: HIV INFECTION
     Dosage: 1200 MG
     Route: 064
     Dates: start: 20081023
  9. PREZISTA [Suspect]
     Dosage: 500 MG, BID
     Route: 064
  10. PREDNISOLONE [Concomitant]
     Indication: PRODUCT USED FOR UNKNOWN INDICATION
     Dosage: 25 MG, UNK
     Route: 064
  11. PREDNISOLONE [Concomitant]
     Dosage: 25 MG, UNK
     Route: 064
  12. ZIDOVUDINE [Concomitant]
     Indication: PRODUCT USED FOR UNKNOWN INDICATION
     Dosage: UNK
     Route: 064
  13. ZIDOVUDINE [Concomitant]
     Route: 064
  14. NOVORAPID [Concomitant]
     Indication: GESTATIONAL DIABETES
     Route: 064
  15. OXYGEN [Concomitant]
  16. NITROUS OXIDE [Concomitant]

REACTIONS (23)
  - Foetal exposure during pregnancy [Recovered/Resolved]
  - Tethered cord syndrome [Recovered/Resolved with Sequelae]
  - Sepsis [Recovered/Resolved]
  - Genitalia external ambiguous [Recovered/Resolved with Sequelae]
  - Erythema [Recovered/Resolved]
  - Meconium stain [Recovered/Resolved with Sequelae]
  - Cloacal exstrophy [Recovered/Resolved with Sequelae]
  - Spine malformation [Unknown]
  - Musculoskeletal discomfort [Recovered/Resolved with Sequelae]
  - Exomphalos [Recovered/Resolved with Sequelae]
  - Musculoskeletal deformity [Recovered/Resolved with Sequelae]
  - Meningomyelocele [Recovered/Resolved with Sequelae]
  - Congenital genital malformation [Unknown]
  - Premature baby [Not Recovered/Not Resolved]
  - Gastrointestinal disorder congenital [Unknown]
  - Bladder agenesis [Recovered/Resolved with Sequelae]
  - Anal atresia [Recovered/Resolved with Sequelae]
  - Congenital anomaly [Unknown]
  - Blood iron decreased [Recovered/Resolved]
  - Caudal regression syndrome [Recovered/Resolved with Sequelae]
  - Umbilical cord abnormality [Recovered/Resolved with Sequelae]
  - Gastrointestinal malformation [Unknown]
  - Lipodystrophy acquired [Unknown]
